APPROVED DRUG PRODUCT: PRASUGREL
Active Ingredient: PRASUGREL HYDROCHLORIDE
Strength: EQ 5MG BASE
Dosage Form/Route: TABLET;ORAL
Application: A205930 | Product #001
Applicant: LUPIN LTD
Approved: Jan 9, 2023 | RLD: No | RS: No | Type: DISCN